FAERS Safety Report 7491504-6 (Version None)
Quarter: 2011Q2

REPORT INFORMATION
  Report Type: 
  Country: None (occurrence: None)
  Receive Date: 20110519
  Receipt Date: 20110516
  Transmission Date: 20111010
  Serious: Yes (Death)
  Sender: FDA-Public Use
  Company Number: PHHY2010US89038

PATIENT
  Sex: Male

DRUGS (2)
  1. ZOMETA [Suspect]
     Indication: METASTASES TO BONE
     Dosage: 4 MG, QMO
     Dates: start: 20101012
  2. SANDOSTATIN LAR [Suspect]
     Dosage: 20 MG, UNK
     Dates: start: 20101012

REACTIONS (1)
  - HEPATIC FAILURE [None]
